FAERS Safety Report 16400228 (Version 1)
Quarter: 2019Q2

REPORT INFORMATION
  Report Type: Spontaneous
  Country: US (occurrence: US)
  Receive Date: 20190606
  Receipt Date: 20190606
  Transmission Date: 20190711
  Serious: No
  Sender: FDA-Public Use
  Company Number: US-ALLERGAN-1837204US

PATIENT
  Age: 42 Year
  Sex: Female

DRUGS (2)
  1. KYBELLA [Suspect]
     Active Substance: DEOXYCHOLIC ACID
     Dosage: 4.4 ML, SINGLE
     Route: 058
     Dates: start: 201801, end: 201801
  2. KYBELLA [Suspect]
     Active Substance: DEOXYCHOLIC ACID
     Indication: PRODUCT USED FOR UNKNOWN INDICATION
     Dosage: 8.8 ML, SINGLE
     Route: 058
     Dates: start: 201806, end: 201806

REACTIONS (4)
  - Product administered at inappropriate site [Unknown]
  - Drug ineffective [Unknown]
  - Temporomandibular joint syndrome [Unknown]
  - Facial asymmetry [Unknown]

NARRATIVE: CASE EVENT DATE: 201801
